FAERS Safety Report 10191824 (Version 1)
Quarter: 2014Q2

REPORT INFORMATION
  Report Type: Spontaneous
  Country: DE (occurrence: DE)
  Receive Date: 20140523
  Receipt Date: 20140523
  Transmission Date: 20141212
  Serious: Yes (Other)
  Sender: FDA-Public Use
  Company Number: DE-TEVA-483554USA

PATIENT
  Sex: Male

DRUGS (1)
  1. LEVACT [Suspect]
     Indication: FOLLICLE CENTRE LYMPHOMA, FOLLICULAR GRADE I, II, III
     Route: 065
     Dates: start: 20140111

REACTIONS (1)
  - Ascites [Not Recovered/Not Resolved]
